FAERS Safety Report 6360582-X (Version None)
Quarter: 2009Q3

REPORT INFORMATION
  Report Type: 
  Country: None (occurrence: None)
  Receive Date: 20090915
  Receipt Date: 20090901
  Transmission Date: 20100115
  Serious: Yes (Other)
  Sender: FDA-Public Use
  Company Number: US-000854

PATIENT
  Sex: Male

DRUGS (1)
  1. FIRMAGON [Suspect]
     Indication: PROSTATE CANCER
     Dosage: SUBCUTANEOUS
     Route: 058
     Dates: start: 20090504, end: 20090504

REACTIONS (4)
  - HOT FLUSH [None]
  - LYMPHADENOPATHY [None]
  - TOOTH ABSCESS [None]
  - TREATMENT NONCOMPLIANCE [None]
